FAERS Safety Report 8246329-0 (Version None)
Quarter: 2012Q1

REPORT INFORMATION
  Report Type: 
  Country: None (occurrence: None)
  Receive Date: 20120330
  Receipt Date: 20120320
  Transmission Date: 20120608
  Serious: Yes (Other)
  Sender: FDA-Public Use
  Company Number: US-ABBOTT-12P-163-0917434-00

PATIENT
  Sex: Male
  Weight: 79.45 kg

DRUGS (4)
  1. NORVASC [Suspect]
     Indication: HYPERTENSION
     Dates: start: 20110901, end: 20120306
  2. ANDROGEL [Suspect]
     Indication: BLOOD TESTOSTERONE DECREASED
     Dates: start: 20090101, end: 20120319
  3. FLOMAX [Suspect]
     Indication: BENIGN PROSTATIC HYPERPLASIA
     Dates: start: 20110101, end: 20120306
  4. XANAX [Suspect]
     Indication: TINNITUS
     Dates: start: 20111201, end: 20120306

REACTIONS (9)
  - PENILE SIZE REDUCED [None]
  - PROSTATIC SPECIFIC ANTIGEN INCREASED [None]
  - PARAESTHESIA [None]
  - SKIN BURNING SENSATION [None]
  - TINNITUS [None]
  - EXPIRED DRUG ADMINISTERED [None]
  - DEAFNESS [None]
  - ARTHRALGIA [None]
  - HYPERTENSION [None]
